FAERS Safety Report 5415275-X (Version None)
Quarter: 2007Q3

REPORT INFORMATION
  Report Type: 
  Country: None (occurrence: None)
  Receive Date: 20070813
  Receipt Date: 20070730
  Transmission Date: 20080115
  Serious: No
  Sender: FDA-Public Use
  Company Number: 2007AL003066

PATIENT
  Age: 70 Year
  Sex: Female

DRUGS (3)
  1. HYDROCHLOROTHIAZIDE [Suspect]
     Indication: HYPERTENSION
     Dosage: 12.5 MG; X1;
  2. ASPIRIN [Concomitant]
  3. BISOPROLOL [Concomitant]

REACTIONS (18)
  - AGITATION [None]
  - BACK PAIN [None]
  - BODY TEMPERATURE INCREASED [None]
  - CARDIAC OUTPUT DECREASED [None]
  - CYANOSIS [None]
  - DRUG EFFECT DECREASED [None]
  - FEELING COLD [None]
  - FLUSHING [None]
  - HYPERVENTILATION [None]
  - MIXED INCONTINENCE [None]
  - NAUSEA [None]
  - OBESITY [None]
  - PERIPHERAL COLDNESS [None]
  - PULMONARY OEDEMA [None]
  - SHOCK [None]
  - VASCULAR RESISTANCE PULMONARY INCREASED [None]
  - VASCULAR RESISTANCE SYSTEMIC INCREASED [None]
  - VOMITING [None]
